FAERS Safety Report 17410013 (Version 3)
Quarter: 2021Q4

REPORT INFORMATION
  Report Type: Spontaneous
  Country: US (occurrence: US)
  Receive Date: 20200212
  Receipt Date: 20211216
  Transmission Date: 20220303
  Serious: Yes (Other)
  Sender: FDA-Public Use
  Company Number: US-PFIZER INC-2020059209

PATIENT
  Age: 28 Year
  Sex: Male

DRUGS (5)
  1. RAPAMUNE [Suspect]
     Active Substance: SIROLIMUS
     Indication: Liver transplant
     Dosage: 1 MG, 1X/DAY
     Route: 048
     Dates: start: 2014
  2. RAPAMUNE [Suspect]
     Active Substance: SIROLIMUS
     Dosage: UNK, 1X/DAY(0.5 MG ON ONE DAY, THEN 1MG ON THE NEXT DAY)
     Route: 048
  3. RAPAMUNE [Suspect]
     Active Substance: SIROLIMUS
     Dosage: 0.5 MG, 1X/DAY
     Route: 048
  4. MYFORTIC [Concomitant]
     Active Substance: MYCOPHENOLATE SODIUM
     Indication: Liver transplant
     Dosage: UNK
     Dates: start: 2014
  5. PROGRAF [Concomitant]
     Active Substance: TACROLIMUS
     Indication: Liver transplant
     Dosage: UNK
     Dates: start: 2013, end: 2014

REACTIONS (4)
  - Transplant rejection [Recovering/Resolving]
  - Immunosuppressant drug level increased [Recovering/Resolving]
  - Intentional product misuse [Recovering/Resolving]
  - Off label use [Unknown]

NARRATIVE: CASE EVENT DATE: 20140101
